FAERS Safety Report 5350851-4 (Version None)
Quarter: 2007Q2

REPORT INFORMATION
  Report Type: 
  Country: None (occurrence: None)
  Receive Date: 20070608
  Receipt Date: 20070606
  Transmission Date: 20071010
  Serious: Yes (Hospitalization)
  Sender: FDA-Public Use
  Company Number: A0654446A

PATIENT
  Age: 60 Year
  Sex: Male

DRUGS (4)
  1. AVANDARYL [Suspect]
     Dosage: 1TAB PER DAY
     Route: 048
     Dates: start: 20070301, end: 20070521
  2. ASPIRIN [Concomitant]
  3. NEXIUM [Concomitant]
  4. PLAVIX [Concomitant]

REACTIONS (2)
  - DYSPNOEA [None]
  - MYOCARDIAL INFARCTION [None]
